FAERS Safety Report 8321122-9 (Version None)
Quarter: 2012Q1

REPORT INFORMATION
  Report Type: 
  Country: None (occurrence: None)
  Receive Date: 20120315
  Receipt Date: 20110203
  Transmission Date: 20120608
  Serious: No
  Sender: FDA-Public Use
  Company Number: PHHY2011US09978

PATIENT
  Age: 21 Year
  Sex: Female

DRUGS (5)
  1. GILENYA [Suspect]
     Dosage: 0.5 MG, QD, ORAL
     Route: 048
     Dates: start: 20110203
  2. MIGRANAL (DIHYDROERGOTAMINE MESILATE) [Concomitant]
  3. RESTORIL [Concomitant]
  4. SUMATRIPTAN SUCCINATE (IMITREX) [Concomitant]
  5. CELEXA [Concomitant]

REACTIONS (2)
  - HUNGER [None]
  - SOMNOLENCE [None]
